FAERS Safety Report 13399927 (Version 1)
Quarter: 2017Q2

REPORT INFORMATION
  Report Type: Spontaneous
  Country: CN (occurrence: CN)
  Receive Date: 20170404
  Receipt Date: 20170404
  Transmission Date: 20170830
  Serious: Yes (Other)
  Sender: FDA-Public Use
  Company Number: CN-ASTRAZENECA-2017SE34113

PATIENT
  Age: 17169 Day
  Sex: Female
  Weight: 55 kg

DRUGS (2)
  1. ESOMEPRAZOLE MAGNESIUM. [Suspect]
     Active Substance: ESOMEPRAZOLE MAGNESIUM
     Indication: GASTRITIS EROSIVE
     Route: 048
     Dates: start: 20161004, end: 20161004
  2. ALMAGATE [Suspect]
     Active Substance: ALMAGATE
     Indication: GASTRITIS EROSIVE
     Route: 048
     Dates: start: 20161004, end: 20161004

REACTIONS (4)
  - Benign neoplasm of eyelid [Recovering/Resolving]
  - Pruritus [Recovering/Resolving]
  - Rash [Recovering/Resolving]
  - Hypersensitivity [Recovering/Resolving]

NARRATIVE: CASE EVENT DATE: 20161006
